FAERS Safety Report 13646845 (Version 1)
Quarter: 2017Q2

REPORT INFORMATION
  Report Type: Spontaneous
  Country: None (occurrence: US)
  Receive Date: 20170612
  Receipt Date: 20170612
  Transmission Date: 20170830
  Serious: Yes (Death)
  Sender: FDA-Public Use
  Company Number: None

PATIENT
  Age: 64 Year
  Sex: Male

DRUGS (1)
  1. STIVARGA [Suspect]
     Active Substance: REGORAFENIB
     Indication: HEPATOCELLULAR CARCINOMA
     Dosage: 80MG ONCE DAILY ORALLY
     Route: 048
     Dates: start: 20170505, end: 20170604

REACTIONS (2)
  - Malignant neoplasm progression [None]
  - Hepatic cancer [None]

NARRATIVE: CASE EVENT DATE: 20170604
